FAERS Safety Report 5241296-6 (Version None)
Quarter: 2007Q1

REPORT INFORMATION
  Report Type: 
  Country: None (occurrence: None)
  Receive Date: 20070220
  Receipt Date: 20070209
  Transmission Date: 20070707
  Serious: No
  Sender: FDA-Public Use
  Company Number: BE-BAXTER-2007BH001561

PATIENT

DRUGS (1)
  1. STERILE WATER FOR INJECTION IN PLASTIC CONTAINER [Suspect]
     Indication: MEDICATION ERROR
     Route: 065
     Dates: start: 20070126, end: 20070126

REACTIONS (2)
  - HAEMOLYSIS [None]
  - MEDICATION ERROR [None]
